FAERS Safety Report 8465266-X (Version None)
Quarter: 2012Q2

REPORT INFORMATION
  Report Type: 
  Country: None (occurrence: None)
  Receive Date: 20120626
  Receipt Date: 20120621
  Transmission Date: 20120825
  Serious: Yes (Hospitalization)
  Sender: FDA-Public Use
  Company Number: PHEH2012US012450

PATIENT
  Sex: Female

DRUGS (2)
  1. EXJADE [Suspect]
     Indication: IRON OVERLOAD
     Dosage: 250 MG, DAILY
     Route: 048
  2. EXJADE [Suspect]
     Indication: SICKLE CELL ANAEMIA

REACTIONS (4)
  - ACUTE CHEST SYNDROME [None]
  - SICKLE CELL ANAEMIA WITH CRISIS [None]
  - IRON OVERLOAD [None]
  - VITAMIN D DEFICIENCY [None]
